FAERS Safety Report 12637446 (Version 2)
Quarter: 2016Q3

REPORT INFORMATION
  Report Type: Spontaneous
  Country: US (occurrence: US)
  Receive Date: 20160809
  Receipt Date: 20160824
  Transmission Date: 20161109
  Serious: No
  Sender: FDA-Public Use
  Company Number: US-BEH-2016062383

PATIENT
  Sex: Female
  Weight: 93.62 kg

DRUGS (27)
  1. PRIVIGEN [Suspect]
     Active Substance: HUMAN IMMUNOGLOBULIN G
     Dosage: UNK
     Route: 042
  2. DIPHENHYDRAMINE. [Concomitant]
     Active Substance: DIPHENHYDRAMINE
  3. KENALOG [Concomitant]
     Active Substance: TRIAMCINOLONE ACETONIDE
  4. ALBUTEROL SULFATE. [Concomitant]
     Active Substance: ALBUTEROL SULFATE
  5. VICODIN [Concomitant]
     Active Substance: ACETAMINOPHEN\HYDROCODONE BITARTRATE
  6. EPIPEN [Concomitant]
     Active Substance: EPINEPHRINE
  7. PROAIR HFA [Concomitant]
     Active Substance: ALBUTEROL SULFATE
  8. CEFTRIAXONE. [Concomitant]
     Active Substance: CEFTRIAXONE
  9. SINGULAIR [Concomitant]
     Active Substance: MONTELUKAST SODIUM
  10. PRIVIGEN [Suspect]
     Active Substance: HUMAN IMMUNOGLOBULIN G
     Indication: IMMUNODEFICIENCY COMMON VARIABLE
     Route: 042
  11. SODIUM CHLORIDE. [Concomitant]
     Active Substance: SODIUM CHLORIDE
  12. CYMBALTA [Concomitant]
     Active Substance: DULOXETINE HYDROCHLORIDE
  13. LYRICA [Concomitant]
     Active Substance: PREGABALIN
  14. DIFLUCAN [Concomitant]
     Active Substance: FLUCONAZOLE
  15. AUVI-Q AUTOINJECTOR REPORTED AS AUVI-Q [Concomitant]
  16. LORAZEPAM. [Concomitant]
     Active Substance: LORAZEPAM
  17. EMLA [Concomitant]
     Active Substance: LIDOCAINE\PRILOCAINE
  18. PRIVIGEN [Suspect]
     Active Substance: HUMAN IMMUNOGLOBULIN G
     Dosage: 40 G, QMT
     Route: 042
  19. ACETAMINOPHEN. [Concomitant]
     Active Substance: ACETAMINOPHEN
  20. SYMBICORT [Concomitant]
     Active Substance: BUDESONIDE\FORMOTEROL FUMARATE DIHYDRATE
  21. ZYRTEC [Concomitant]
     Active Substance: CETIRIZINE HYDROCHLORIDE
  22. PHENTERMINE. [Concomitant]
     Active Substance: PHENTERMINE
  23. XOLAIR [Concomitant]
     Active Substance: OMALIZUMAB
  24. LEVAQUIN [Concomitant]
     Active Substance: LEVOFLOXACIN
  25. L-M-X [Concomitant]
  26. OMEPRAZOLE. [Concomitant]
     Active Substance: OMEPRAZOLE
  27. THEO-24 ER [Concomitant]

REACTIONS (2)
  - Bronchitis [Unknown]
  - Sinusitis [Unknown]
